FAERS Safety Report 23122338 (Version 1)
Quarter: 2023Q4

REPORT INFORMATION
  Report Type: Spontaneous
  Country: KR (occurrence: KR)
  Receive Date: 20231030
  Receipt Date: 20231030
  Transmission Date: 20240110
  Serious: Yes (Other)
  Sender: FDA-Public Use
  Company Number: KR-RK PHARMA, INC-20231000060

PATIENT
  Age: 44 Year
  Sex: Male

DRUGS (3)
  1. MITOMYCIN [Suspect]
     Active Substance: MITOMYCIN
     Indication: Uveitic glaucoma
     Dosage: 0.1 MILLILITER, SINGLE
     Route: 057
  2. GATIFLOXACIN [Concomitant]
     Active Substance: GATIFLOXACIN
  3. LOTEMAX [Concomitant]
     Active Substance: LOTEPREDNOL ETABONATE
     Dosage: UNK, QID

REACTIONS (1)
  - Toxicity to various agents [Recovered/Resolved]
